FAERS Safety Report 23591522 (Version 1)
Quarter: 2024Q1

REPORT INFORMATION
  Report Type: Spontaneous
  Country: US (occurrence: US)
  Receive Date: 20240304
  Receipt Date: 20240304
  Transmission Date: 20240410
  Serious: No
  Sender: FDA-Public Use
  Company Number: US-SA-SAC20240228000277

PATIENT
  Age: 7 Year
  Sex: Male

DRUGS (3)
  1. ELOCTATE [Suspect]
     Active Substance: EFMOROCTOCOG ALFA
     Dosage: 750 UNITS (+/-10%) DAILY AS NEEDED
     Route: 065
  2. ELOCTATE [Suspect]
     Active Substance: EFMOROCTOCOG ALFA
     Dosage: 750 UNITS (+/-10%) DAILY AS NEEDED
     Route: 065
  3. AMICAR [Suspect]
     Active Substance: AMINOCAPROIC ACID

REACTIONS (3)
  - Mouth haemorrhage [Unknown]
  - Loose tooth [Unknown]
  - Expired product administered [Unknown]

NARRATIVE: CASE EVENT DATE: 20240213
